FAERS Safety Report 15668285 (Version 1)
Quarter: 2018Q4

REPORT INFORMATION
  Report Type: Spontaneous
  Country: FR (occurrence: FR)
  Receive Date: 20181129
  Receipt Date: 20181129
  Transmission Date: 20190205
  Serious: Yes (Other)
  Sender: FDA-Public Use
  Company Number: FR-TEVA-2018-FR-979329

PATIENT
  Age: 63 Year
  Sex: Male
  Weight: 72 kg

DRUGS (4)
  1. AUGMENTIN [Suspect]
     Active Substance: AMOXICILLIN\CLAVULANATE POTASSIUM
     Indication: ANTIBIOTIC PROPHYLAXIS
     Route: 048
     Dates: start: 20180927, end: 20181001
  2. DOXORUBICIN [Suspect]
     Active Substance: DOXORUBICIN
     Indication: PRODUCT USED FOR UNKNOWN INDICATION
     Route: 013
     Dates: start: 20180927, end: 20180927
  3. OROZAMUDOL 50 MG, COMPRIM? ORODISPERSIBLE [Suspect]
     Active Substance: TRAMADOL
     Indication: DENTAL OPERATION
     Dosage: 2 DOSAGE FORMS DAILY;
     Route: 048
     Dates: start: 20180928, end: 20181001
  4. PARACETAMOL [Suspect]
     Active Substance: ACETAMINOPHEN
     Indication: DENTAL OPERATION
     Route: 065
     Dates: start: 20180928, end: 20181001

REACTIONS (1)
  - Pancytopenia [Recovering/Resolving]

NARRATIVE: CASE EVENT DATE: 20181005
